FAERS Safety Report 7220932-9 (Version None)
Quarter: 2011Q1

REPORT INFORMATION
  Report Type: 
  Country: None (occurrence: None)
  Receive Date: 20110112
  Receipt Date: 20110103
  Transmission Date: 20110831
  Serious: Yes (Hospitalization)
  Sender: FDA-Public Use
  Company Number: US-ELI_LILLY_AND_COMPANY-US200909001593

PATIENT
  Sex: Female

DRUGS (9)
  1. FORTEO [Suspect]
     Indication: OSTEOPOROSIS
     Dosage: 20 UG, DAILY (1/D)
     Route: 065
     Dates: start: 20090812
  2. LYRICA [Concomitant]
  3. FORTEO [Suspect]
     Dosage: 20 UG, DAILY (1/D)
     Route: 065
  4. OXYCONTIN [Concomitant]
     Dosage: UNK, 2/D
  5. LASIX [Concomitant]
  6. FORTEO [Suspect]
     Dosage: 20 UG, DAILY (1/D)
     Route: 065
  7. NEXIUM [Concomitant]
  8. GABAPENTIN [Concomitant]
     Dosage: 300 MG, 2/D
  9. VITAMIN TAB [Concomitant]

REACTIONS (6)
  - PAIN IN EXTREMITY [None]
  - SINUSITIS [None]
  - MUSCULAR WEAKNESS [None]
  - ARTHRALGIA [None]
  - ARTHROPATHY [None]
  - JOINT ADHESION [None]
